FAERS Safety Report 7806022-2 (Version None)
Quarter: 2011Q4

REPORT INFORMATION
  Report Type: 
  Country: None (occurrence: None)
  Receive Date: 20111011
  Receipt Date: 20111010
  Transmission Date: 20120403
  Serious: No
  Sender: FDA-Public Use
  Company Number: US-B.I. PHARMACEUTICALS,INC./RIDGEFIELD-2011-BP-12240BP

PATIENT
  Age: 50 Year
  Sex: Male

DRUGS (1)
  1. VIRAMUNE [Suspect]
     Indication: HIV TEST POSITIVE
     Dates: start: 20110423

REACTIONS (5)
  - FATIGUE [None]
  - DIZZINESS [None]
  - ABNORMAL DREAMS [None]
  - OCULAR HYPERAEMIA [None]
  - SOMNOLENCE [None]
